FAERS Safety Report 8811475 (Version 3)
Quarter: 2012Q4

REPORT INFORMATION
  Report Type: 
  Country: US (occurrence: US)
  Receive Date: 20120927
  Receipt Date: 20121128
  Transmission Date: 20130627
  Serious: No
  Sender: FDA-Public Use
  Company Number: US-B.I. PHARMACEUTICALS,INC./RIDGEFIELD-2012-BP-23325BP

PATIENT
  Age: 74 None
  Sex: Female
  Weight: 42 kg

DRUGS (3)
  1. SPIRIVA [Suspect]
     Indication: CHRONIC OBSTRUCTIVE PULMONARY DISEASE
     Dosage: 18 mcg
     Route: 055
     Dates: start: 2008
  2. FLOVENT HFA [Concomitant]
     Indication: DYSPNOEA
     Dosage: 220 mg
     Route: 055
     Dates: start: 201208
  3. PRO AIR HFA [Concomitant]
     Indication: INHALATION THERAPY
     Route: 055
     Dates: start: 2002

REACTIONS (3)
  - Respiratory arrest [Recovered/Resolved]
  - Lung infection [Not Recovered/Not Resolved]
  - Product quality issue [Not Recovered/Not Resolved]
